FAERS Safety Report 6847831-6 (Version None)
Quarter: 2010Q3

REPORT INFORMATION
  Report Type: 
  Country: None (occurrence: None)
  Receive Date: 20100714
  Receipt Date: 20100628
  Transmission Date: 20110219
  Serious: Yes (Other)
  Sender: FDA-Public Use
  Company Number: 2010SCPR001736

PATIENT
  Age: 56 Year
  Sex: Male

DRUGS (5)
  1. MINOXIDIL [Suspect]
     Indication: HYPERTENSION
     Dosage: ORAL
     Route: 048
     Dates: start: 20090801, end: 20100702
  2. DIURETICS UNKNOWN [Suspect]
     Indication: RENAL FAILURE
  3. AMLODIPINE [Suspect]
  4. METOPROLOL SUCCINATE [Concomitant]
  5. CLONIDINE (CLONIDINE) TABLET [Concomitant]

REACTIONS (7)
  - BLOOD PRESSURE INCREASED [None]
  - DIPLOPIA [None]
  - LACRIMATION INCREASED [None]
  - MEMORY IMPAIRMENT [None]
  - MENTAL IMPAIRMENT [None]
  - VISION BLURRED [None]
  - VISUAL IMPAIRMENT [None]
